FAERS Safety Report 6508906-4 (Version None)
Quarter: 2009Q4

REPORT INFORMATION
  Report Type: 
  Country: None (occurrence: None)
  Receive Date: 20091221
  Receipt Date: 20090916
  Transmission Date: 20100525
  Serious: No
  Sender: FDA-Public Use
  Company Number: US-ASTRAZENECA-2009SE13660

PATIENT
  Sex: Female
  Weight: 90.7 kg

DRUGS (7)
  1. CRESTOR [Suspect]
     Route: 048
  2. LUNESTA [Suspect]
     Indication: INSOMNIA
  3. LUNESTA [Suspect]
  4. LUNESTA [Suspect]
     Dosage: NORMALLY TOOK 2 MG BUT SOMETIMES TAKING 3 MG
  5. INSULIN [Concomitant]
     Route: 058
  6. NORVASC [Concomitant]
     Route: 048
  7. ERYTHROMYCIN [Concomitant]

REACTIONS (2)
  - MIDDLE INSOMNIA [None]
  - MUSCLE DISORDER [None]
